FAERS Safety Report 8827008 (Version 2)
Quarter: 2012Q4

REPORT INFORMATION
  Report Type: 
  Country: US (occurrence: US)
  Receive Date: 20121005
  Receipt Date: 20121114
  Transmission Date: 20130627
  Serious: Yes (Other)
  Sender: FDA-Public Use
  Company Number: US-JNJFOC-20120911402

PATIENT
  Age: 68 Year
  Sex: Male
  Weight: 91.17 kg

DRUGS (22)
  1. DURAGESIC [Suspect]
     Indication: OROPHARYNGEAL PAIN
     Route: 062
     Dates: start: 20120917, end: 20120918
  2. DURAGESIC [Suspect]
     Indication: PAIN
     Route: 062
     Dates: start: 20120917, end: 20120918
  3. UNKNOWN MEDICATION [Concomitant]
     Route: 065
  4. DEXAMETHASONE [Concomitant]
     Indication: HYPERSENSITIVITY
     Route: 065
     Dates: start: 20120904, end: 20121001
  5. HYDROCODONE ACETAMINOPHEN [Concomitant]
     Indication: PAIN
     Dosage: 10/325
     Route: 065
     Dates: start: 20120718
  6. VISCOUS LIDOCAINE [Concomitant]
     Indication: MUCOSAL INFLAMMATION
     Route: 065
  7. UNSPECIFIED MOUTHWASH [Concomitant]
     Indication: MUCOSAL INFLAMMATION
     Route: 065
  8. ONDANSETRON [Concomitant]
     Indication: NAUSEA
     Route: 065
  9. PROCHLORPERAZINE [Concomitant]
     Indication: NAUSEA
     Route: 065
  10. DIAZEPAM [Concomitant]
     Indication: PRODUCT USED FOR UNKNOWN INDICATION
     Route: 065
  11. FAMOTIDINE [Concomitant]
     Indication: PRODUCT USED FOR UNKNOWN INDICATION
     Route: 065
  12. FOLIC ACID [Concomitant]
     Indication: PRODUCT USED FOR UNKNOWN INDICATION
     Route: 065
  13. GABAPENTIN [Concomitant]
     Indication: PRODUCT USED FOR UNKNOWN INDICATION
     Route: 065
  14. IPRATROPIUM-ALBUTEROL [Concomitant]
     Indication: PRODUCT USED FOR UNKNOWN INDICATION
     Route: 065
  15. LEVOTHYROXINE [Concomitant]
     Indication: PRODUCT USED FOR UNKNOWN INDICATION
     Route: 065
  16. LORATADINE [Concomitant]
     Indication: PRODUCT USED FOR UNKNOWN INDICATION
     Route: 065
  17. MECLIZINE [Concomitant]
     Indication: PRODUCT USED FOR UNKNOWN INDICATION
     Route: 065
  18. METHADONE [Concomitant]
     Indication: PRODUCT USED FOR UNKNOWN INDICATION
     Route: 065
  19. METOPROLOL [Concomitant]
     Indication: PRODUCT USED FOR UNKNOWN INDICATION
     Route: 065
  20. MORPHINE [Concomitant]
     Indication: PRODUCT USED FOR UNKNOWN INDICATION
     Route: 048
  21. SIMVASTATIN [Concomitant]
     Indication: PRODUCT USED FOR UNKNOWN INDICATION
     Route: 065
  22. POTASSIUM CHLORIDE [Concomitant]
     Indication: PRODUCT USED FOR UNKNOWN INDICATION
     Route: 065

REACTIONS (3)
  - Loss of consciousness [Recovered/Resolved]
  - Drug administered at inappropriate site [Unknown]
  - Device leakage [Unknown]
